FAERS Safety Report 4789231-9 (Version None)
Quarter: 2005Q4

REPORT INFORMATION
  Report Type: 
  Country: None (occurrence: None)
  Receive Date: 20051003
  Receipt Date: 20050720
  Transmission Date: 20060501
  Serious: No
  Sender: FDA-Public Use
  Company Number: SU-2005-003638

PATIENT
  Age: 44 Year
  Sex: Female
  Weight: 68.9467 kg

DRUGS (3)
  1. BENICAR HCT [Suspect]
     Indication: HYPERTENSION
     Dosage: 40.125 MG QD PO
     Route: 048
     Dates: start: 20040202, end: 20050607
  2. ZYRTEC [Concomitant]
  3. ALLEGRA [Concomitant]

REACTIONS (5)
  - ASTHENIA [None]
  - FACIAL PARESIS [None]
  - HYPOAESTHESIA [None]
  - MASTOIDITIS [None]
  - POLLAKIURIA [None]
